FAERS Safety Report 21307308 (Version 1)
Quarter: 2022Q3

REPORT INFORMATION
  Report Type: Spontaneous
  Country: US (occurrence: US)
  Receive Date: 20220908
  Receipt Date: 20220908
  Transmission Date: 20221026
  Serious: Yes (Hospitalization, Other)
  Sender: FDA-Public Use
  Company Number: US-PPDUS-2022V1000432

PATIENT
  Age: 43 Year
  Sex: Female
  Weight: 122.58 kg

DRUGS (6)
  1. QSYMIA [Suspect]
     Active Substance: PHENTERMINE HYDROCHLORIDE\TOPIRAMATE
     Indication: Weight decreased
     Route: 048
     Dates: end: 202108
  2. QSYMIA [Suspect]
     Active Substance: PHENTERMINE HYDROCHLORIDE\TOPIRAMATE
     Indication: Weight decreased
     Route: 048
     Dates: start: 2021
  3. METOPROLOL TARTRATE EXTENDED RELEASE [Concomitant]
     Indication: Ventricular extrasystoles
     Route: 048
     Dates: start: 2013
  4. METOPROLOL TARTRATE EXTENDED RELEASE [Concomitant]
     Indication: Bradycardia
  5. ARMOUR THYROID [Concomitant]
     Active Substance: THYROID, PORCINE
     Indication: Hypothyroidism
     Route: 048
  6. FENTANYL [Concomitant]
     Active Substance: FENTANYL
     Indication: Product used for unknown indication
     Route: 065

REACTIONS (6)
  - COVID-19 [Recovered/Resolved]
  - Cytokine storm [Recovered/Resolved]
  - Weight increased [Unknown]
  - Thyroid function test abnormal [Recovered/Resolved]
  - Blood glucose abnormal [Recovered/Resolved]
  - Memory impairment [Recovering/Resolving]

NARRATIVE: CASE EVENT DATE: 20210801
